FAERS Safety Report 6247231-6 (Version None)
Quarter: 2009Q2

REPORT INFORMATION
  Report Type: 
  Country: None (occurrence: None)
  Receive Date: 20090626
  Receipt Date: 20090615
  Transmission Date: 20091009
  Serious: Yes (Other)
  Sender: FDA-Public Use
  Company Number: BE-PFIZER INC-2009227964

PATIENT
  Age: 53 Year

DRUGS (2)
  1. CHAMPIX [Suspect]
     Indication: SMOKING CESSATION THERAPY
     Dosage: 0.5 MG, 1X/DAY
     Route: 048
     Dates: start: 20090105, end: 20090112
  2. MANIPREX [Concomitant]
     Indication: DEPRESSION
     Dosage: 250 MG, 3X/DAY
     Route: 048

REACTIONS (3)
  - ANAL FISSURE [None]
  - RECTAL HAEMORRHAGE [None]
  - VOMITING [None]
